FAERS Safety Report 4761079-0 (Version None)
Quarter: 2005Q3

REPORT INFORMATION
  Report Type: 
  Country: None (occurrence: None)
  Receive Date: 20050901
  Receipt Date: 20050818
  Transmission Date: 20060218
  Serious: Yes (Life-Threatening, Hospitalization)
  Sender: FDA-Public Use
  Company Number: 214489

PATIENT
  Age: 61 Year
  Sex: Female
  Weight: 75 kg

DRUGS (1)
  1. MABTHERA(RITUXIMAB) CONC FOR SOLUTION FOR INFUSION [Suspect]
     Indication: B-CELL LYMPHOMA
     Dosage: 637 MG, INTRAVENOUS
     Route: 042
     Dates: start: 20050512

REACTIONS (21)
  - ACCOMMODATION DISORDER [None]
  - AGITATION [None]
  - BLOOD LACTIC ACID INCREASED [None]
  - BRONCHOSPASM [None]
  - COMA [None]
  - CRANIAL NEUROPATHY [None]
  - CYTOKINE RELEASE SYNDROME [None]
  - DRUG SCREEN POSITIVE [None]
  - DRY SKIN [None]
  - DYSARTHRIA [None]
  - DYSPNOEA [None]
  - HYPERTENSION [None]
  - HYPERTONIA [None]
  - LEUKOCYTOSIS [None]
  - MENINGISM [None]
  - MUSCULOSKELETAL STIFFNESS [None]
  - OBSTRUCTION [None]
  - PLEURAL EFFUSION [None]
  - PUPILLARY REFLEX IMPAIRED [None]
  - STRIDOR [None]
  - VISUAL ACUITY REDUCED [None]
